FAERS Safety Report 5662092-1 (Version None)
Quarter: 2008Q1

REPORT INFORMATION
  Report Type: 
  Country: None (occurrence: None)
  Receive Date: 20080229
  Receipt Date: 20080222
  Transmission Date: 20080703
  Serious: Yes (Other)
  Sender: FDA-Public Use
  Company Number: 2008004635

PATIENT
  Age: 46 Year
  Sex: Male

DRUGS (1)
  1. MINOXIDIL [Suspect]
     Dosage: TOPICAL
     Route: 061
     Dates: end: 20080221

REACTIONS (1)
  - GAMMA-GLUTAMYLTRANSFERASE INCREASED [None]
